FAERS Safety Report 25123009 (Version 1)
Quarter: 2025Q1

REPORT INFORMATION
  Report Type: Spontaneous
  Country: CA (occurrence: CA)
  Receive Date: 20250326
  Receipt Date: 20250326
  Transmission Date: 20250408
  Serious: Yes (Death)
  Sender: SANDOZ
  Company Number: CA-SANDOZ-SDZ2025CA018534

PATIENT
  Age: 83 Year
  Sex: Female

DRUGS (1)
  1. ERELZI [Suspect]
     Active Substance: ETANERCEPT-SZZS
     Indication: Product used for unknown indication
     Route: 065

REACTIONS (1)
  - Death [Fatal]
